FAERS Safety Report 22180625 (Version 1)
Quarter: 2023Q2

REPORT INFORMATION
  Report Type: Spontaneous
  Country: US (occurrence: US)
  Receive Date: 20230406
  Receipt Date: 20230406
  Transmission Date: 20230722
  Serious: No
  Sender: FDA-Public Use
  Company Number: US-GSK-US2023046473

PATIENT
  Sex: Female
  Weight: 66.22 kg

DRUGS (1)
  1. BENLYSTA [Suspect]
     Active Substance: BELIMUMAB
     Indication: Lupus cystitis
     Dosage: 200 MG

REACTIONS (2)
  - Exposure during pregnancy [Unknown]
  - Live birth [Unknown]
